FAERS Safety Report 22400643 (Version 1)
Quarter: 2023Q2

REPORT INFORMATION
  Report Type: Spontaneous
  Country: US (occurrence: US)
  Receive Date: 20230602
  Receipt Date: 20230602
  Transmission Date: 20230722
  Serious: Yes (Life-Threatening, Hospitalization)
  Sender: FDA-Public Use
  Company Number: US-TEVA-2023-US-2893201

PATIENT
  Age: 16 Year
  Sex: Female

DRUGS (1)
  1. VERAPAMIL [Suspect]
     Active Substance: VERAPAMIL HYDROCHLORIDE
     Indication: Product used for unknown indication
     Dosage: THE GIRL INGESTED 88 TABLETS (21.12 G)
     Route: 048

REACTIONS (4)
  - Cardiogenic shock [Unknown]
  - Cardiac failure [Unknown]
  - Toxicity to various agents [Unknown]
  - Intentional overdose [Unknown]
